FAERS Safety Report 23935837 (Version 1)
Quarter: 2024Q2

REPORT INFORMATION
  Report Type: Spontaneous
  Country: GB (occurrence: GB)
  Receive Date: 20240604
  Receipt Date: 20240604
  Transmission Date: 20240716
  Serious: Yes (Other)
  Sender: FDA-Public Use
  Company Number: None

PATIENT
  Age: 71 Year
  Sex: Female
  Weight: 93 kg

DRUGS (11)
  1. ROSUVASTATIN [Suspect]
     Active Substance: ROSUVASTATIN
     Indication: Blood cholesterol increased
     Route: 065
     Dates: start: 20230622
  2. RAMIPRIL [Concomitant]
     Active Substance: RAMIPRIL
     Indication: Hypertension
     Dates: start: 20230622
  3. FLUCONAZOLE [Concomitant]
     Active Substance: FLUCONAZOLE
     Indication: Candida infection
     Dosage: TIME INTERVAL: TOTAL
     Dates: start: 20240503, end: 20240504
  4. LANSOPRAZOLE [Concomitant]
     Active Substance: LANSOPRAZOLE
     Dates: start: 20230421
  5. RYBELSUS [Concomitant]
     Active Substance: SEMAGLUTIDE
     Dates: start: 20240520
  6. CLOTRIMAZOLE [Concomitant]
     Active Substance: CLOTRIMAZOLE
     Indication: Antifungal treatment
     Dosage: APPLY TWO OR THREE TIMES A DAY,
     Dates: start: 20240503, end: 20240510
  7. MOMETASONE [Concomitant]
     Active Substance: MOMETASONE
     Dosage: TIME INTERVAL: AS NECESSARY: APPLY THINLY ONCE DAILY (STRONG STERO...,
     Dates: start: 20240305, end: 20240402
  8. ESTRADIOL [Concomitant]
     Active Substance: ESTRADIOL
     Dosage: INSERT ,  AT NIGHT
     Dates: start: 20230421
  9. METFORMIN [Concomitant]
     Active Substance: METFORMIN HYDROCHLORIDE
     Dosage: WITH FOOD,
     Dates: start: 20230421
  10. CLOBETASOL PROPIONATE [Concomitant]
     Active Substance: CLOBETASOL PROPIONATE
     Dosage: APPLY THINLY,
     Dates: start: 20240305, end: 20240326
  11. PIOGLITAZONE [Concomitant]
     Active Substance: PIOGLITAZONE
     Dates: start: 20231221, end: 20240520

REACTIONS (3)
  - Paraesthesia [Recovered/Resolved]
  - Rash [Recovered/Resolved]
  - Myalgia [Recovered/Resolved]
